FAERS Safety Report 8912476 (Version 4)
Quarter: 2016Q4

REPORT INFORMATION
  Report Type: Spontaneous
  Country: US (occurrence: US)
  Receive Date: 20121116
  Receipt Date: 20161101
  Transmission Date: 20170207
  Serious: Yes (Hospitalization, Other)
  Sender: FDA-Public Use
  Company Number: US-009507513-1211USA003060

PATIENT
  Sex: Female
  Weight: 49.43 kg

DRUGS (3)
  1. FOSAMAX [Suspect]
     Active Substance: ALENDRONATE SODIUM
     Indication: OSTEOPOROSIS
     Dosage: UNK UNK, UNKNOWN
     Route: 048
     Dates: start: 20060302
  2. ALENDRONATE SODIUM. [Suspect]
     Active Substance: ALENDRONATE SODIUM
     Indication: OSTEOPOROSIS
     Dosage: 70 MG, QW
     Route: 048
     Dates: start: 20090830, end: 20100101
  3. FOSAMAX PLUS D [Suspect]
     Active Substance: ALENDRONATE SODIUM\CHOLECALCIFEROL
     Indication: OSTEOPOROSIS
     Dosage: 70/2800 MG/QW
     Route: 048

REACTIONS (105)
  - Chronic obstructive pulmonary disease [Unknown]
  - Pleural effusion [Unknown]
  - Nephrolithiasis [Unknown]
  - Constipation [Unknown]
  - Propionibacterium infection [Unknown]
  - Nephrolithiasis [Unknown]
  - Hyperlipidaemia [Not Recovered/Not Resolved]
  - Asthma-chronic obstructive pulmonary disease overlap syndrome [Unknown]
  - Chronic obstructive pulmonary disease [Unknown]
  - Clostridium difficile colitis [Unknown]
  - Urinary tract infection [Unknown]
  - Pneumonia [Unknown]
  - Ureteral stent insertion [Unknown]
  - Chronic obstructive pulmonary disease [Not Recovered/Not Resolved]
  - Injury [Unknown]
  - Bursitis [Unknown]
  - Large intestine polyp [Unknown]
  - Pulmonary fibrosis [Unknown]
  - Breast calcifications [Unknown]
  - Hiatus hernia [Unknown]
  - Hypervitaminosis D [Unknown]
  - Electrolyte imbalance [Unknown]
  - Sinus tachycardia [Unknown]
  - Sinus tachycardia [Unknown]
  - Granuloma [Unknown]
  - Hypocalcaemia [Unknown]
  - Femur fracture [Unknown]
  - Acute kidney injury [Unknown]
  - Bronchitis [Unknown]
  - Pancreatitis [Unknown]
  - Asthma [Not Recovered/Not Resolved]
  - Tendonitis [Unknown]
  - Hypertension [Not Recovered/Not Resolved]
  - Pleural fibrosis [Unknown]
  - Anaemia postoperative [Unknown]
  - Tachycardia [Unknown]
  - Hyponatraemia [Unknown]
  - Leukocytosis [Recovered/Resolved]
  - Right atrial enlargement [Unknown]
  - Blood albumin decreased [Unknown]
  - Open reduction of fracture [Unknown]
  - Femur fracture [Unknown]
  - Intramedullary rod insertion [Unknown]
  - Orthopaedic procedure [Unknown]
  - Intramedullary rod insertion [Unknown]
  - Bone graft [Unknown]
  - Chest pain [Unknown]
  - Chronic obstructive pulmonary disease [Unknown]
  - Shoulder operation [Unknown]
  - Benign tumour excision [Unknown]
  - Anaemia postoperative [Unknown]
  - Anxiety [Unknown]
  - Urinary tract infection [Unknown]
  - Hyperparathyroidism [Unknown]
  - Cerebral small vessel ischaemic disease [Unknown]
  - Back pain [Unknown]
  - Blood phosphorus decreased [Unknown]
  - Acute kidney injury [Unknown]
  - Rhabdomyolysis [Unknown]
  - Renal stone removal [Unknown]
  - Osteoarthritis [Unknown]
  - Hydronephrosis [Unknown]
  - Pelvi-ureteric obstruction [Unknown]
  - Blood glucose increased [Unknown]
  - Nephrolithiasis [Unknown]
  - Uterine leiomyoma [Unknown]
  - Hydronephrosis [Unknown]
  - Orthopaedic procedure [Unknown]
  - Medical device removal [Unknown]
  - Enterococcus test positive [Unknown]
  - Lung infiltration [Unknown]
  - Asthma [Unknown]
  - Urinary tract infection [Recovered/Resolved]
  - Atrophy [Unknown]
  - Bone disorder [Unknown]
  - Hyperthyroidism [Unknown]
  - Anaemia postoperative [Unknown]
  - Bronchitis [Unknown]
  - Bronchitis chronic [Not Recovered/Not Resolved]
  - Osteopenia [Unknown]
  - Aortic arteriosclerosis [Not Recovered/Not Resolved]
  - Bursitis [Unknown]
  - Glycosylated haemoglobin increased [Unknown]
  - Hypervitaminosis A [Unknown]
  - Fracture nonunion [Unknown]
  - Blood cholesterol increased [Not Recovered/Not Resolved]
  - Emphysema [Unknown]
  - Acute kidney injury [Unknown]
  - Acute kidney injury [Unknown]
  - Hypercalcaemia [Unknown]
  - Chronic obstructive pulmonary disease [Unknown]
  - Hypercalcaemia [Unknown]
  - Mental status changes [Unknown]
  - Hypercalcaemia [Recovered/Resolved]
  - Dehydration [Unknown]
  - Colon adenoma [Unknown]
  - Pleural effusion [Unknown]
  - Stent removal [Unknown]
  - Gastrointestinal stromal tumour [Unknown]
  - Cellulitis [Unknown]
  - Arteriosclerosis [Unknown]
  - Leukocytosis [Unknown]
  - Alkalosis [Unknown]
  - Electrocardiogram ST-T change [Unknown]
  - Device failure [Unknown]

NARRATIVE: CASE EVENT DATE: 20020905
